FAERS Safety Report 5834855-0 (Version None)
Quarter: 2008Q3

REPORT INFORMATION
  Report Type: 
  Country: None (occurrence: None)
  Receive Date: 20080805
  Receipt Date: 20080805
  Transmission Date: 20090109
  Serious: Yes (Hospitalization)
  Sender: FDA-Public Use
  Company Number: None

PATIENT
  Age: 61 Year
  Sex: Male
  Weight: 85 kg

DRUGS (1)
  1. ERBITUX [Suspect]
     Indication: OESOPHAGEAL CANCER METASTATIC
     Dosage: 810 MG 1X OVER SECONDARY TO IV
     Route: 042
     Dates: start: 20080722

REACTIONS (4)
  - CARDIO-RESPIRATORY ARREST [None]
  - CONVULSION [None]
  - HYPOTENSION [None]
  - RASH [None]
